FAERS Safety Report 21208853 (Version 17)
Quarter: 2023Q1

REPORT INFORMATION
  Report Type: Report from Study
  Country: US (occurrence: US)
  Receive Date: 20220812
  Receipt Date: 20230310
  Transmission Date: 20230417
  Serious: No
  Sender: FDA-Public Use
  Company Number: US-NOVARTISTESTPH-NVSC2022US182861

PATIENT
  Sex: Female
  Weight: 93.44 kg

DRUGS (7)
  1. TREPROSTINIL [Suspect]
     Active Substance: TREPROSTINIL
     Indication: Pulmonary arterial hypertension
     Dosage: UNK, CONT (10 NG/KG/MIN)
     Route: 042
     Dates: start: 20220804
  2. TREPROSTINIL [Suspect]
     Active Substance: TREPROSTINIL
     Dosage: UNK UNK, CONT (9 NG/KG/MIN)
     Route: 042
  3. TREPROSTINIL [Suspect]
     Active Substance: TREPROSTINIL
     Dosage: UNK UNK, CONT (11 NG/KG/MIN)
     Route: 042
  4. TREPROSTINIL [Suspect]
     Active Substance: TREPROSTINIL
     Dosage: UNK UNK, CONT (14 NG/KG/MIN)
     Route: 042
  5. TREPROSTINIL [Suspect]
     Active Substance: TREPROSTINIL
     Dosage: UNK, CONT (DOSE 16 NG/KG/ MIN)
     Route: 042
     Dates: start: 20220804
  6. OPSUMIT [Concomitant]
     Active Substance: MACITENTAN
     Indication: Product used for unknown indication
     Dosage: UNK
     Route: 065
  7. TADALAFIL [Concomitant]
     Active Substance: TADALAFIL
     Indication: Product used for unknown indication
     Dosage: UNK
     Route: 065

REACTIONS (23)
  - Flushing [Recovering/Resolving]
  - Skin irritation [Unknown]
  - Skin burning sensation [Unknown]
  - Chills [Unknown]
  - Pyrexia [Unknown]
  - Urticaria [Unknown]
  - Malaise [Unknown]
  - Dyspepsia [Unknown]
  - Abdominal discomfort [Unknown]
  - Complication associated with device [Unknown]
  - Vitamin D decreased [Unknown]
  - Fatigue [Unknown]
  - COVID-19 [Unknown]
  - Rash erythematous [Unknown]
  - Pruritus [Unknown]
  - Nausea [Recovering/Resolving]
  - Headache [Recovering/Resolving]
  - Rash [Unknown]
  - Diarrhoea [Unknown]
  - Dizziness [Unknown]
  - Injection site swelling [Unknown]
  - Injection site erythema [Unknown]
  - Injection site discharge [Recovered/Resolved]
